FAERS Safety Report 8129593-8 (Version None)
Quarter: 2012Q1

REPORT INFORMATION
  Report Type: 
  Country: None (occurrence: None)
  Receive Date: 20120210
  Receipt Date: 20120131
  Transmission Date: 20120608
  Serious: Yes (Hospitalization)
  Sender: FDA-Public Use
  Company Number: US-GLAXOSMITHKLINE-A0964106A

PATIENT
  Age: 16 Year
  Sex: Male

DRUGS (4)
  1. VIMPAT [Suspect]
     Indication: PRODUCT USED FOR UNKNOWN INDICATION
     Dosage: 300MG SEE DOSAGE TEXT
     Dates: end: 20120106
  2. TEGRETOL [Concomitant]
  3. LAMICTAL [Suspect]
     Indication: PRODUCT USED FOR UNKNOWN INDICATION
     Dosage: 500MG PER DAY
  4. LAMOTRIGINE [Suspect]
     Indication: CONVULSION
     Dosage: 100MG VARIABLE DOSE
     Route: 048

REACTIONS (3)
  - DIZZINESS [None]
  - CONVULSION [None]
  - FATIGUE [None]
